FAERS Safety Report 8436300-8 (Version None)
Quarter: 2012Q2

REPORT INFORMATION
  Report Type: 
  Country: None (occurrence: None)
  Receive Date: 20120614
  Receipt Date: 20120607
  Transmission Date: 20120825
  Serious: Yes (Hospitalization, Other)
  Sender: FDA-Public Use
  Company Number: FR-ROCHE-649976

PATIENT
  Sex: Female
  Weight: 49 kg

DRUGS (2)
  1. EVEROLIMUS [Suspect]
     Indication: RENAL CELL CARCINOMA
     Dosage: DATE OF LAST DOSE:20/JUN/2009
     Route: 048
     Dates: start: 20090408, end: 20090722
  2. AVASTIN [Suspect]
     Indication: RENAL CELL CARCINOMA
     Dosage: DATE OF LAST DOSE:16/JUN/2009
     Route: 042
     Dates: start: 20090407, end: 20090722

REACTIONS (4)
  - HYPERTENSION [None]
  - MYOCARDIAL INFARCTION [None]
  - CARDIAC FAILURE ACUTE [None]
  - PULMONARY OEDEMA [None]
